FAERS Safety Report 9329234 (Version 1)
Quarter: 2013Q2

REPORT INFORMATION
  Report Type: Spontaneous
  Country: US (occurrence: US)
  Receive Date: 20130604
  Receipt Date: 20130604
  Transmission Date: 20140414
  Serious: No
  Sender: FDA-Public Use
  Company Number: US-SANOFI-AVENTIS-2013SA024848

PATIENT
  Age: 68 Year
  Sex: Female

DRUGS (3)
  1. LANTUS [Suspect]
     Dosage: DOSE:70 UNIT(S)
     Route: 051
  2. LANTUS [Suspect]
     Dosage: DOSE:39 UNIT(S)
     Route: 051
     Dates: start: 20130212
  3. HUMALOG [Concomitant]

REACTIONS (3)
  - Fatigue [Unknown]
  - Somnolence [Unknown]
  - Decreased appetite [Unknown]
